FAERS Safety Report 8407697-X (Version None)
Quarter: 2012Q2

REPORT INFORMATION
  Report Type: 
  Country: None (occurrence: None)
  Receive Date: 20120604
  Receipt Date: 20120529
  Transmission Date: 20120825
  Serious: Yes (Death, Hospitalization, Other)
  Sender: FDA-Public Use
  Company Number: JP-CELGENEUS-087-21880-11053224

PATIENT
  Sex: Male

DRUGS (10)
  1. MAGMITT [Concomitant]
     Indication: DIABETES MELLITUS
     Dosage: 2970 MILLIGRAM
     Route: 048
     Dates: start: 20101221, end: 20110128
  2. LEVOFLOXACIN [Concomitant]
     Indication: DIABETES MELLITUS
     Route: 047
     Dates: start: 20110104, end: 20110107
  3. REVLIMID [Suspect]
     Indication: MYELODYSPLASTIC SYNDROME
     Dosage: 10 MILLIGRAM
     Route: 048
     Dates: start: 20101221, end: 20110109
  4. PURSENNID [Concomitant]
     Indication: DIABETES MELLITUS
     Dosage: 48 MILLIGRAM
     Route: 048
     Dates: start: 20101221, end: 20110128
  5. LOXONIN PAP [Concomitant]
     Indication: PROPHYLAXIS
     Dosage: 100 MILLIGRAM
     Route: 062
     Dates: start: 20110104, end: 20110107
  6. CYTARABINE [Concomitant]
     Indication: HAEMORRHAGE
     Route: 065
     Dates: start: 20110223, end: 20110309
  7. OMEPRAZOLE [Concomitant]
     Indication: DIABETES MELLITUS
     Dosage: 20 MILLIGRAM
     Route: 048
     Dates: start: 20101221, end: 20110128
  8. TRANSAMINE CAP [Concomitant]
     Indication: DIABETES MELLITUS
     Dosage: 10 MILLIGRAM
     Route: 048
     Dates: start: 20101221, end: 20110128
  9. CYTARABINE [Concomitant]
     Route: 065
     Dates: start: 20110101
  10. ACETAMINOPHEN [Concomitant]
     Indication: DIABETES MELLITUS
     Dosage: 800 MILLIGRAM
     Route: 048
     Dates: start: 20110104, end: 20110128

REACTIONS (8)
  - THROMBOCYTOPENIA [None]
  - NEUTROPENIA [None]
  - MELAENA [None]
  - ASPERGILLOSIS [None]
  - MYELODYSPLASTIC SYNDROME TRANSFORMATION [None]
  - PNEUMONIA BACTERIAL [None]
  - CARDIAC FAILURE [None]
  - ACUTE MYELOID LEUKAEMIA [None]
